FAERS Safety Report 19706261 (Version 4)
Quarter: 2022Q1

REPORT INFORMATION
  Report Type: Report from Study
  Country: DZ (occurrence: None)
  Receive Date: 20210817
  Receipt Date: 20220220
  Transmission Date: 20220423
  Serious: Yes (Hospitalization, Other)
  Sender: FDA-Public Use
  Company Number: DZ-MERCK HEALTHCARE KGAA-9203930

PATIENT
  Age: 35 Year
  Sex: Female

DRUGS (2)
  1. REBIF [Suspect]
     Active Substance: INTERFERON BETA-1A
     Indication: Multiple sclerosis
     Route: 058
     Dates: start: 20201026, end: 20201121
  2. REBIF [Suspect]
     Active Substance: INTERFERON BETA-1A
     Route: 058
     Dates: start: 202105

REACTIONS (10)
  - Amniotic fluid volume decreased [Recovered/Resolved]
  - Foetal malposition [Recovered/Resolved]
  - Uterine hypotonus [Recovered/Resolved]
  - Gestational diabetes [Unknown]
  - Hypophagia [Unknown]
  - Suppressed lactation [Not Recovered/Not Resolved]
  - Stress [Unknown]
  - Live birth [Recovered/Resolved]
  - Breast feeding [Recovered/Resolved]
  - Maternal exposure during pregnancy [Recovered/Resolved]

NARRATIVE: CASE EVENT DATE: 20200101
